FAERS Safety Report 24568677 (Version 2)
Quarter: 2024Q4

REPORT INFORMATION
  Report Type: Spontaneous
  Country: US (occurrence: US)
  Receive Date: 20241031
  Receipt Date: 20241119
  Transmission Date: 20250115
  Serious: Yes (Other)
  Sender: BAYER HEALTHCARE LLC
  Company Number: US-BAYER-2024A152767

PATIENT
  Age: 77 Year
  Sex: Female

DRUGS (2)
  1. BAYER LOW DOSE [Interacting]
     Active Substance: ASPIRIN
     Indication: Anticoagulant therapy
     Dosage: 1 DF, QD
     Route: 048
  2. PLAVIX [Interacting]
     Active Substance: CLOPIDOGREL BISULFATE

REACTIONS (4)
  - Deafness [Unknown]
  - Contusion [None]
  - Haemorrhage [None]
  - Amnesia [Unknown]
